FAERS Safety Report 7471164-0 (Version None)
Quarter: 2011Q2

REPORT INFORMATION
  Report Type: 
  Country: None (occurrence: None)
  Receive Date: 20110510
  Receipt Date: 20110506
  Transmission Date: 20111010
  Serious: Yes (Other)
  Sender: FDA-Public Use
  Company Number: US-PFIZER INC-2010072261

PATIENT
  Sex: Female
  Weight: 74.83 kg

DRUGS (23)
  1. LYRICA [Suspect]
  2. LYRICA [Suspect]
     Indication: PAIN
  3. DIAZEPAM [Concomitant]
     Indication: BLOOD PRESSURE INCREASED
     Dosage: 2 MG, UNK
  4. PRAVASTATIN [Concomitant]
     Dosage: 80 MG, 1X/DAY
  5. PRAVASTATIN [Concomitant]
     Dosage: 80 MG, UNK
  6. TRAZODONE [Concomitant]
     Dosage: 50MG 2-3 TABLETS ONCE A DAY
  7. CALCIUM WITH VITAMIN D [Concomitant]
     Dosage: 2000 IU, 2X/DAY
  8. LYRICA [Suspect]
     Indication: TENDON PAIN
  9. ATIVAN [Concomitant]
     Indication: ANXIETY
     Dosage: 1 MG, AS NEEDED
  10. PATANOL [Concomitant]
     Dosage: UNK
     Route: 047
  11. LYRICA [Suspect]
     Indication: ARTHRALGIA
     Dosage: 150 MG, 2X/DAY
     Route: 048
     Dates: start: 20100301
  12. OMEPRAZOLE [Concomitant]
     Dosage: 20 MG, 2X/DAY
  13. SUDAFED 12 HOUR [Concomitant]
     Dosage: 30 MG, 2X/DAY
  14. LYRICA [Suspect]
     Indication: MYALGIA
  15. DEPAKOTE [Concomitant]
     Dosage: 250 MG, 2X/DAY
  16. AMBIEN [Concomitant]
     Indication: INSOMNIA
     Dosage: 10 MG ONCE A DAY AS NEEDED
  17. CLARITIN [Concomitant]
     Dosage: 10 MG, 1X/DAY
  18. FOSAMAX [Concomitant]
     Dosage: 70 MG, 1X/DAY
  19. PEPCID [Concomitant]
     Dosage: 20 MG, 2X/DAY
  20. ATIVAN [Concomitant]
     Dosage: 1 MG, UNK
  21. ADVAIR DISKUS 100/50 [Concomitant]
     Dosage: 239/21
  22. VENTOLIN [Concomitant]
     Dosage: 90 UG, AS NEEDED
  23. VICODIN [Concomitant]
     Dosage: 5/500

REACTIONS (7)
  - FEELING ABNORMAL [None]
  - PAIN [None]
  - BEDRIDDEN [None]
  - INFLUENZA [None]
  - ARTHRALGIA [None]
  - ARTHRITIS [None]
  - WITHDRAWAL SYNDROME [None]
